FAERS Safety Report 10396273 (Version 3)
Quarter: 2014Q3

REPORT INFORMATION
  Report Type: Spontaneous
  Country: DE (occurrence: DE)
  Receive Date: 20140820
  Receipt Date: 20140918
  Transmission Date: 20150326
  Serious: Yes (Other)
  Sender: FDA-Public Use
  Company Number: DE-ASTELLAS-2014EU010837

PATIENT
  Sex: Female

DRUGS (5)
  1. VESIKUR [Suspect]
     Active Substance: SOLIFENACIN SUCCINATE
     Indication: HYPERTONIC BLADDER
     Dosage: UNK UNK, ONCE DAILY
     Route: 048
     Dates: start: 201305
  2. THYRONAJOD [Concomitant]
     Active Substance: LEVOTHYROXINE SODIUM\POTASSIUM IODIDE
     Indication: HYPOTHYROIDISM
     Route: 048
  3. LOSARTAN [Concomitant]
     Active Substance: LOSARTAN
     Indication: HYPERTENSION
     Route: 048
  4. VELMETIA [Concomitant]
     Active Substance: METFORMIN\SITAGLIPTIN
     Indication: TYPE 2 DIABETES MELLITUS
     Dosage: 50/1000 MG, TWICE DAILY
     Route: 048
     Dates: start: 201301
  5. NITROFURANTOIN. [Concomitant]
     Active Substance: NITROFURANTOIN
     Indication: URINARY TRACT INFECTION
     Route: 048

REACTIONS (4)
  - Gastric disorder [Unknown]
  - Gastrointestinal motility disorder [Unknown]
  - Impaired gastric emptying [Unknown]
  - Reflux gastritis [Not Recovered/Not Resolved]

NARRATIVE: CASE EVENT DATE: 20140704
